FAERS Safety Report 13611832 (Version 6)
Quarter: 2017Q4

REPORT INFORMATION
  Report Type: Report from Study
  Country: GB (occurrence: GB)
  Receive Date: 20170605
  Receipt Date: 20171228
  Transmission Date: 20180320
  Serious: Yes (Hospitalization, Other)
  Sender: FDA-Public Use
  Company Number: GB-PFIZER INC-2017235922

PATIENT
  Age: 57 Year
  Sex: Male
  Weight: 83 kg

DRUGS (8)
  1. OXALIPLATIN. [Suspect]
     Active Substance: OXALIPLATIN
     Dosage: UNK
  2. CAPECITABINE. [Suspect]
     Active Substance: CAPECITABINE
     Indication: OESOPHAGEAL ADENOCARCINOMA
     Dosage: 2000 MG, 2X/DAY
     Route: 048
     Dates: start: 20170420, end: 20170502
  3. OXALIPLATIN. [Suspect]
     Active Substance: OXALIPLATIN
     Dosage: UNK
  4. OXALIPLATIN. [Suspect]
     Active Substance: OXALIPLATIN
     Indication: OESOPHAGEAL ADENOCARCINOMA
     Dosage: 260 MG, (CYCLE 1)
     Route: 042
     Dates: start: 20170420
  5. OXALIPLATIN. [Suspect]
     Active Substance: OXALIPLATIN
     Dosage: UNK
  6. CAPECITABINE. [Suspect]
     Active Substance: CAPECITABINE
     Dosage: 1450 MG, 2X/DAY
     Route: 048
     Dates: start: 20170519
  7. OXALIPLATIN. [Suspect]
     Active Substance: OXALIPLATIN
     Dosage: 260 MG, (CYCLE 2)
     Route: 042
     Dates: start: 20170519
  8. OXALIPLATIN. [Suspect]
     Active Substance: OXALIPLATIN
     Dosage: UNK

REACTIONS (2)
  - Ischaemic stroke [Recovered/Resolved]
  - Vision blurred [Recovered/Resolved]

NARRATIVE: CASE EVENT DATE: 20170502
